FAERS Safety Report 4822203-4 (Version None)
Quarter: 2005Q4

REPORT INFORMATION
  Report Type: 
  Country: None (occurrence: None)
  Receive Date: 20051103
  Receipt Date: 20051019
  Transmission Date: 20060501
  Serious: Yes (Hospitalization)
  Sender: FDA-Public Use
  Company Number: 2005-DE-04350GD

PATIENT
  Sex: Female

DRUGS (3)
  1. MORPHINE [Suspect]
     Indication: PROCEDURAL PAIN
     Dosage: 31 MG, IV
     Route: 042
  2. DOLASETRON (DOLASETRON) [Concomitant]
  3. OXYCODONE HCL [Concomitant]

REACTIONS (3)
  - NAUSEA [None]
  - PAIN [None]
  - REFUSAL OF TREATMENT BY PATIENT [None]
